FAERS Safety Report 17766141 (Version 3)
Quarter: 2020Q3

REPORT INFORMATION
  Report Type: Report from Study
  Country: None (occurrence: US)
  Receive Date: 20200511
  Receipt Date: 20200723
  Transmission Date: 20201102
  Serious: Yes (Hospitalization)
  Sender: FDA-Public Use
  Company Number: US-ABBVIE-20K-163-3384633-00

PATIENT
  Age: 76 Year
  Sex: Female
  Weight: 53.57 kg

DRUGS (2)
  1. RINVOQ [Suspect]
     Active Substance: UPADACITINIB
     Indication: RHEUMATOID ARTHRITIS
     Route: 048
     Dates: start: 20200401, end: 20200623
  2. PREDNISONE. [Concomitant]
     Active Substance: PREDNISONE
     Indication: RHEUMATOID ARTHRITIS

REACTIONS (8)
  - Colonic abscess [Recovering/Resolving]
  - Faecaloma [Not Recovered/Not Resolved]
  - Urinary tract infection [Unknown]
  - White blood cells urine [Unknown]
  - Cholelithiasis [Not Recovered/Not Resolved]
  - Protein urine present [Unknown]
  - Constipation [Not Recovered/Not Resolved]
  - Dyspnoea [Not Recovered/Not Resolved]

NARRATIVE: CASE EVENT DATE: 2020
